FAERS Safety Report 20795924 (Version 3)
Quarter: 2022Q3

REPORT INFORMATION
  Report Type: Spontaneous
  Country: JP (occurrence: JP)
  Receive Date: 20220506
  Receipt Date: 20220705
  Transmission Date: 20221027
  Serious: No
  Sender: FDA-Public Use
  Company Number: JP-GLAXOSMITHKLINE-JP2022JPN072022

PATIENT

DRUGS (3)
  1. SOTROVIMAB [Suspect]
     Active Substance: SOTROVIMAB
     Indication: Coronavirus test positive
     Dosage: 500 MG
     Route: 042
     Dates: start: 20220330, end: 20220330
  2. FERROUS SULFATE [Suspect]
     Active Substance: FERROUS SULFATE
     Dosage: 105 MG/DAY
     Route: 048
     Dates: start: 20211020
  3. DEXTROMETHORPHAN [Suspect]
     Active Substance: DEXTROMETHORPHAN
     Dosage: 45 MG/DAY
     Route: 048
     Dates: start: 20220329

REACTIONS (2)
  - Exposure during pregnancy [Unknown]
  - Live birth [Unknown]
